FAERS Safety Report 6812156-1 (Version None)
Quarter: 2010Q3

REPORT INFORMATION
  Report Type: 
  Country: None (occurrence: None)
  Receive Date: 20100701
  Receipt Date: 20100223
  Transmission Date: 20110219
  Serious: No
  Sender: FDA-Public Use
  Company Number: US-ABBOTT-10P-163-0619156-00

PATIENT
  Sex: Male
  Weight: 77.18 kg

DRUGS (14)
  1. NORVIR [Suspect]
     Indication: HIV TEST POSITIVE
     Route: 048
  2. REYATAZ [Concomitant]
     Indication: HIV TEST POSITIVE
     Route: 048
  3. EPIVIR [Concomitant]
     Indication: HIV TEST POSITIVE
     Route: 048
  4. TEMAZEPAM [Concomitant]
     Indication: INSOMNIA
     Route: 048
  5. STAVUDINE [Concomitant]
     Indication: HIV TEST POSITIVE
     Route: 048
  6. DIAZEPAM [Concomitant]
     Indication: PANIC ATTACK
     Route: 048
  7. ALENDRONATE [Concomitant]
     Indication: INTERVERTEBRAL DISC DEGENERATION
     Route: 048
  8. ALENDRONATE [Concomitant]
     Indication: OSTEOPOROSIS
  9. DOC-O-LACE [Concomitant]
     Indication: CONSTIPATION PROPHYLAXIS
     Route: 048
  10. METHADONE [Concomitant]
     Indication: NEUROPATHY PERIPHERAL
     Route: 048
  11. METHADONE [Concomitant]
     Indication: NERVE INJURY
  12. METHADONE [Concomitant]
     Indication: PAIN IN EXTREMITY
  13. OXYCODONE HCL [Concomitant]
     Indication: BACK PAIN
     Route: 048
  14. VITAMINS [Concomitant]
     Indication: PRODUCT USED FOR UNKNOWN INDICATION

REACTIONS (4)
  - BACK DISORDER [None]
  - GASTROOESOPHAGEAL REFLUX DISEASE [None]
  - INCORRECT STORAGE OF DRUG [None]
  - POOR QUALITY DRUG ADMINISTERED [None]
